FAERS Safety Report 9996662 (Version 1)
Quarter: 2014Q1

REPORT INFORMATION
  Report Type: Spontaneous
  Country: CA (occurrence: CA)
  Receive Date: 20140311
  Receipt Date: 20140311
  Transmission Date: 20141002
  Serious: Yes (Death)
  Sender: FDA-Public Use
  Company Number: CA-PFIZER INC-2014067054

PATIENT
  Sex: Male

DRUGS (1)
  1. INLYTA [Suspect]
     Indication: RENAL CELL CARCINOMA
     Dosage: 5 MG, 2X/DAY
     Dates: start: 20121018

REACTIONS (1)
  - Death [Fatal]
